FAERS Safety Report 8457706-7 (Version None)
Quarter: 2012Q2

REPORT INFORMATION
  Report Type: 
  Country: None (occurrence: None)
  Receive Date: 20120618
  Receipt Date: 20120618
  Transmission Date: 20120825
  Serious: Yes (Disabling, Other)
  Sender: FDA-Public Use
  Company Number: None

PATIENT

DRUGS (2)
  1. CIPROFLOXACIN HCL [Suspect]
     Indication: CHRONIC SINUSITIS
     Dosage: ONE TABLET 2 TIMES A DAY PO
     Route: 048
     Dates: start: 20110201, end: 20110215
  2. CIPROFLOXACIN HCL [Suspect]
     Indication: CHRONIC SINUSITIS
     Dosage: ONE TABLET 2 TIMES A DAY PO
     Route: 048
     Dates: start: 20120429, end: 20120608

REACTIONS (13)
  - FALL [None]
  - LIGAMENT DISORDER [None]
  - SLEEP DISORDER DUE TO GENERAL MEDICAL CONDITION, INSOMNIA TYPE [None]
  - NO THERAPEUTIC RESPONSE [None]
  - BURNING SENSATION [None]
  - EPICONDYLITIS [None]
  - TENDONITIS [None]
  - LIGAMENT SPRAIN [None]
  - TENDON RUPTURE [None]
  - IMPAIRED WORK ABILITY [None]
  - JOINT SWELLING [None]
  - NEUROPATHY PERIPHERAL [None]
  - GAIT DISTURBANCE [None]
